FAERS Safety Report 14085320 (Version 2)
Quarter: 2018Q1

REPORT INFORMATION
  Report Type: Spontaneous
  Country: US (occurrence: US)
  Receive Date: 20171013
  Receipt Date: 20180110
  Transmission Date: 20180508
  Serious: No
  Sender: FDA-Public Use
  Company Number: US-PFIZER INC-2017441724

PATIENT
  Age: 66 Year
  Sex: Male
  Weight: 88.45 kg

DRUGS (8)
  1. LAMOTRIGINE. [Concomitant]
     Active Substance: LAMOTRIGINE
     Dosage: 200 MG, 2X/DAY
     Route: 048
     Dates: start: 2008
  2. LISINOPRIL/HCTZ [Concomitant]
     Active Substance: HYDROCHLOROTHIAZIDE\LISINOPRIL
     Dosage: 1 DF, 1X/DAY (20MG/12.5MG TABLET, BY MOUTH ONCE A DAY)
     Route: 048
     Dates: start: 2008
  3. SIMVASTIN [Concomitant]
     Active Substance: SIMVASTATIN
     Indication: BLOOD CHOLESTEROL ABNORMAL
     Dosage: 40 MG, 1X/DAY (AT BED TIME)
     Route: 048
     Dates: start: 2006
  4. SIMVASTIN [Concomitant]
     Active Substance: SIMVASTATIN
     Indication: CARDIAC DISORDER
  5. ASPIRIN. [Concomitant]
     Active Substance: ASPIRIN
     Indication: ANTICOAGULANT THERAPY
     Dosage: 325 MG, 1X/DAY (IN THE EVENING)
     Route: 048
     Dates: start: 2006
  6. LYRICA [Suspect]
     Active Substance: PREGABALIN
     Indication: PARAESTHESIA
     Dosage: 150 MG, 2X/DAY
     Route: 048
     Dates: start: 2008
  7. LYRICA [Suspect]
     Active Substance: PREGABALIN
     Indication: NEURALGIA
     Dosage: 150 MG, 2X/DAY
     Route: 048
  8. LISINOPRIL/HCTZ [Concomitant]
     Active Substance: HYDROCHLOROTHIAZIDE\LISINOPRIL
     Indication: FLUID RETENTION
     Dosage: 1 DF  1X/DAY ONCE A DAY IN THE MORNING
     Route: 048
     Dates: start: 2006

REACTIONS (1)
  - Back disorder [Unknown]
